FAERS Safety Report 21493729 (Version 2)
Quarter: 2023Q2

REPORT INFORMATION
  Report Type: Spontaneous
  Country: BE (occurrence: BE)
  Receive Date: 20221021
  Receipt Date: 20230427
  Transmission Date: 20230721
  Serious: Yes (Hospitalization)
  Sender: FDA-Public Use
  Company Number: BE-PFIZER INC-PV202200084914

PATIENT
  Age: 47 Year
  Sex: Male

DRUGS (1)
  1. MEDROL [Suspect]
     Active Substance: METHYLPREDNISOLONE
     Dosage: HIGH DOSE
     Dates: start: 202202

REACTIONS (6)
  - Influenza [Unknown]
  - Lung disorder [Unknown]
  - Respiratory distress [Unknown]
  - Hypoxia [Unknown]
  - Pneumocystis jirovecii pneumonia [Unknown]
  - Staphylococcal infection [Unknown]

NARRATIVE: CASE EVENT DATE: 20220101
